FAERS Safety Report 13496611 (Version 5)
Quarter: 2018Q1

REPORT INFORMATION
  Report Type: Spontaneous
  Country: PE (occurrence: PE)
  Receive Date: 20170428
  Receipt Date: 20180329
  Transmission Date: 20180508
  Serious: Yes (Hospitalization)
  Sender: FDA-Public Use
  Company Number: PE-SA-2017SA075388

PATIENT
  Age: 41 Year
  Sex: Female
  Weight: 62 kg

DRUGS (2)
  1. MYOZYME [Suspect]
     Active Substance: ALGLUCOSIDASE ALFA
     Indication: GLYCOGEN STORAGE DISEASE TYPE II
     Dosage: DOSE-25 VIALS
     Route: 041
     Dates: start: 20140129
  2. GESTAVIT [Concomitant]
     Indication: NUTRITIONAL SUPPLEMENTATION
     Route: 048
     Dates: start: 201704

REACTIONS (4)
  - Vaginal haemorrhage [Recovered/Resolved]
  - Nasopharyngitis [Unknown]
  - Exposure during pregnancy [Unknown]
  - Placenta praevia [Recovered/Resolved]

NARRATIVE: CASE EVENT DATE: 20170419
